FAERS Safety Report 6576068-3 (Version None)
Quarter: 2010Q1

REPORT INFORMATION
  Report Type: 
  Country: None (occurrence: None)
  Receive Date: 20100209
  Receipt Date: 20100129
  Transmission Date: 20100710
  Serious: No
  Sender: FDA-Public Use
  Company Number: PHEH2010US01756

PATIENT
  Age: 66 Year
  Sex: Male

DRUGS (14)
  1. TASIGNA [Suspect]
     Indication: CHRONIC MYELOID LEUKAEMIA
     Dosage: 400 MG, BID
     Route: 048
     Dates: start: 20091231
  2. VALTREX [Concomitant]
     Dosage: 500 MG, UNK
     Route: 048
  3. PROGRAF [Concomitant]
     Dosage: 1.00 MG, QD
     Route: 048
  4. PENICILLIN V POTASSIUM [Concomitant]
     Dosage: UNK
     Route: 048
  5. PEPCID [Concomitant]
     Dosage: UNK
     Route: 048
  6. FISH OIL [Concomitant]
     Dosage: UNK
     Route: 048
  7. MAGNESIUM [Concomitant]
     Route: 048
  8. FOLIC ACID [Concomitant]
     Dosage: 2.2 MG, QD
     Route: 048
  9. DIFLUCAN [Concomitant]
     Dosage: 250 MG, QD
     Route: 048
  10. DAPSONE [Concomitant]
     Dosage: 100 MG, 5X/DAY
     Route: 048
  11. ATENOLOL [Concomitant]
     Dosage: 50 MG, QD
     Route: 048
  12. CARDIZEM [Concomitant]
     Dosage: 300 MG, UNK
     Route: 048
  13. LIPITOR [Concomitant]
     Dosage: 40 MG, QD
     Route: 048
  14. FUROSEMIDE [Concomitant]
     Dosage: 40 MG, QD
     Route: 048

REACTIONS (2)
  - PRURITUS [None]
  - RASH [None]
